FAERS Safety Report 15832641 (Version 5)
Quarter: 2020Q1

REPORT INFORMATION
  Report Type: Report from Study
  Country: US (occurrence: US)
  Receive Date: 20190116
  Receipt Date: 20200121
  Transmission Date: 20200409
  Serious: Yes (Death, Hospitalization, Other)
  Sender: FDA-Public Use
  Company Number: US-ACTELION-A-US2018-181424

PATIENT
  Age: 61 Year
  Sex: Female

DRUGS (4)
  1. OPSUMIT [Suspect]
     Active Substance: MACITENTAN
     Indication: PULMONARY ARTERIAL HYPERTENSION
     Dosage: 10 MG, QD
     Route: 048
     Dates: start: 20181013
  2. OXYGEN. [Concomitant]
     Active Substance: OXYGEN
     Dosage: 2 L
     Route: 055
  3. OXYGEN. [Concomitant]
     Active Substance: OXYGEN
     Dosage: 4 L 24/7
     Route: 055
  4. OXYGEN. [Concomitant]
     Active Substance: OXYGEN
     Dosage: UNK

REACTIONS (13)
  - Hospitalisation [Unknown]
  - Peripheral swelling [Not Recovered/Not Resolved]
  - Phaeochromocytoma [Fatal]
  - Headache [Recovered/Resolved]
  - Weight decreased [Unknown]
  - Dyspnoea [Unknown]
  - Catheterisation cardiac [Unknown]
  - Lung transplant [Unknown]
  - Phaeochromocytoma excision [Fatal]
  - Procedural complication [Fatal]
  - Renal function test [Unknown]
  - Swelling [Not Recovered/Not Resolved]
  - Unevaluable event [Unknown]

NARRATIVE: CASE EVENT DATE: 20181019
